FAERS Safety Report 9128954 (Version 2)
Quarter: 2013Q2

REPORT INFORMATION
  Report Type: Spontaneous
  Country: US (occurrence: US)
  Receive Date: 20130228
  Receipt Date: 20130515
  Transmission Date: 20140414
  Serious: No
  Sender: FDA-Public Use
  Company Number: US-009507513-1302USA013117

PATIENT
  Age: 55 Year
  Sex: Male
  Weight: 76.64 kg

DRUGS (3)
  1. VICTRELIS [Suspect]
     Indication: CHRONIC HEPATITIS C
     Dosage: 800 MG, TID
     Route: 048
     Dates: start: 20120925
  2. PEGASYS [Suspect]
     Indication: HEPATITIS C
     Dosage: 180 MICROGRAM, QW
     Dates: start: 2012
  3. RIBAPAK [Suspect]
     Indication: HEPATITIS C
     Dosage: 400 MG IN MORNING, 600 MG IN EVENING
     Dates: start: 2012

REACTIONS (5)
  - Chest pain [Unknown]
  - Dermatitis [Recovered/Resolved]
  - Stomatitis [Unknown]
  - Fatigue [Unknown]
  - Dry skin [Unknown]
